FAERS Safety Report 17131524 (Version 1)
Quarter: 2019Q4

REPORT INFORMATION
  Report Type: Spontaneous
  Country: US (occurrence: US)
  Receive Date: 20191209
  Receipt Date: 20191209
  Transmission Date: 20200122
  Serious: No
  Sender: FDA-Public Use
  Company Number: US-UCBSA-2016044461

PATIENT
  Age: 11 Year
  Sex: Male

DRUGS (1)
  1. KEPPRA [Suspect]
     Active Substance: LEVETIRACETAM
     Indication: PRODUCT USED FOR UNKNOWN INDICATION
     Dosage: 1000 MG MORNING, 500 MG NOON AND 1000 MG AT BED TIME

REACTIONS (2)
  - Drug level decreased [Unknown]
  - Drug ineffective [Unknown]
